FAERS Safety Report 24033605 (Version 2)
Quarter: 2024Q3

REPORT INFORMATION
  Report Type: Report from Study
  Country: DE (occurrence: DE)
  Receive Date: 20240701
  Receipt Date: 20240710
  Transmission Date: 20241017
  Serious: No
  Sender: ROCHE
  Company Number: DE-ROCHE-3463669

PATIENT
  Age: 24 Year
  Sex: Male
  Weight: 64.0 kg

DRUGS (1)
  1. EVRYSDI [Suspect]
     Active Substance: RISDIPLAM
     Indication: Spinal muscular atrophy
     Dosage: ON 06/NOV/2023, HE RECEIVED LAST DOSE OF RISDIPLAM.
     Route: 048
     Dates: start: 20220120

REACTIONS (6)
  - Hypertransaminasaemia [Unknown]
  - Hyponatraemia [Recovered/Resolved]
  - Blood creatinine decreased [Not Recovered/Not Resolved]
  - Protein total increased [Recovered/Resolved]
  - Myoglobin blood increased [Not Recovered/Not Resolved]
  - Blood lactic acid decreased [Recovered/Resolved]

NARRATIVE: CASE EVENT DATE: 20230711
